FAERS Safety Report 5305046-7 (Version None)
Quarter: 2007Q2

REPORT INFORMATION
  Report Type: 
  Country: None (occurrence: None)
  Receive Date: 20070423
  Receipt Date: 20070412
  Transmission Date: 20071010
  Serious: Yes (Other)
  Sender: FDA-Public Use
  Company Number: PH-PFIZER INC-2007005120

PATIENT
  Sex: Male
  Weight: 68 kg

DRUGS (7)
  1. SU-011,248 [Suspect]
     Indication: RENAL CELL CARCINOMA STAGE UNSPECIFIED
     Route: 048
  2. SU-011,248 [Suspect]
     Route: 048
  3. SU-011,248 [Suspect]
     Route: 048
  4. FLUIMUCIL [Concomitant]
     Route: 048
  5. NEUROBION [Concomitant]
     Route: 048
     Dates: start: 20060323
  6. LIPITOR [Concomitant]
     Route: 048
     Dates: start: 20050808
  7. NEURONTIN [Concomitant]
     Route: 048
     Dates: start: 20060323

REACTIONS (7)
  - ANAL FISTULA INFECTION [None]
  - CELLULITIS [None]
  - ERYTHEMA [None]
  - HAEMORRHOIDS [None]
  - MASS [None]
  - SKIN HYPERPIGMENTATION [None]
  - TENDERNESS [None]
